FAERS Safety Report 9727710 (Version 3)
Quarter: 2014Q1

REPORT INFORMATION
  Report Type: Spontaneous
  Country: US (occurrence: US)
  Receive Date: 20131203
  Receipt Date: 20140116
  Transmission Date: 20141002
  Serious: Yes (Hospitalization)
  Sender: FDA-Public Use
  Company Number: US-GILEAD-2013-0087185

PATIENT
  Sex: Male

DRUGS (17)
  1. LETAIRIS [Suspect]
     Indication: PULMONARY HYPERTENSION
     Dosage: 10 MG, QD
     Route: 048
     Dates: start: 20130403
  2. LETAIRIS [Suspect]
     Indication: HEART DISEASE CONGENITAL
  3. REVATIO [Concomitant]
  4. VELETRI [Concomitant]
  5. REMODULIN [Concomitant]
  6. SILDENAFIL [Concomitant]
  7. LASIX                              /00032601/ [Concomitant]
  8. DIURIL                             /00011801/ [Concomitant]
  9. SPIRONOLACTONE [Concomitant]
  10. POTASSIUM [Concomitant]
  11. CALCIUM [Concomitant]
  12. IRON [Concomitant]
  13. PEPCID                             /00305201/ [Concomitant]
  14. DIGOXIN [Concomitant]
  15. LOMOTIL                            /00034001/ [Concomitant]
  16. CITALOPRAM [Concomitant]
  17. SINGULAR [Concomitant]

REACTIONS (2)
  - Fluid retention [Unknown]
  - Oedema [Unknown]
